FAERS Safety Report 14944445 (Version 1)
Quarter: 2018Q2

REPORT INFORMATION
  Report Type: Spontaneous
  Country: DK (occurrence: DK)
  Receive Date: 20180529
  Receipt Date: 20180529
  Transmission Date: 20180711
  Serious: Yes (Hospitalization, Other)
  Sender: FDA-Public Use
  Company Number: DK-B.I. PHARMACEUTICALS,INC./RIDGEFIELD-2018-12-001826

PATIENT
  Age: 63 Year
  Sex: Male
  Weight: 100 kg

DRUGS (11)
  1. JANUMET [Concomitant]
     Active Substance: METFORMIN HYDROCHLORIDE\SITAGLIPTIN PHOSPHATE
     Indication: DIABETES MELLITUS
     Dosage: STYRKE: 100 + 50 MG
     Route: 048
     Dates: start: 20160314
  2. OXYCODONE TEVA [Concomitant]
     Active Substance: OXYCODONE HYDROCHLORIDE
     Indication: PAIN
     Dosage: STYRKE: 5 MG. DOSIS 1 KAPSEL EFTER BEHOV, H?JST 3 GANGE DAGLIG
     Route: 048
     Dates: start: 20161022
  3. SPIRIVA [Concomitant]
     Active Substance: TIOTROPIUM BROMIDE MONOHYDRATE
     Indication: CHRONIC OBSTRUCTIVE PULMONARY DISEASE
     Dosage: STYRKE: 2,5 MIKROGRAM
     Route: 055
     Dates: start: 20130523
  4. GLIMEPIRID BLUEFISH [Concomitant]
     Indication: DIABETES MELLITUS
     Dosage: STYRKE: 4 MG
     Route: 048
     Dates: start: 20160518
  5. AMLODIPINE [Concomitant]
     Active Substance: AMLODIPINE BESYLATE
     Indication: HYPERTENSION
     Dosage: STYRKE: 5 MG
     Route: 048
     Dates: start: 20160811
  6. LOSARTANKALIUM/HYDROCHLOORTHIAZIDE [Concomitant]
     Indication: HYPERTENSION
     Dosage: STYRKE: 100 + 25 MG
     Route: 048
     Dates: start: 20160126
  7. OXIS TURBOHALER [Concomitant]
     Indication: CHRONIC OBSTRUCTIVE PULMONARY DISEASE
     Dosage: STYRKE: 9 MIKROGRAM/DOSIS
     Route: 055
     Dates: start: 20130521
  8. JARDIANCE [Suspect]
     Active Substance: EMPAGLIFLOZIN
     Indication: TYPE 2 DIABETES MELLITUS
     Dosage: STYRKE: 10 MG
     Route: 048
     Dates: start: 20180424, end: 20180430
  9. LORATADIN ACTAVIS [Concomitant]
     Active Substance: LORATADINE
     Indication: HYPERSENSITIVITY
     Dosage: STYRKE: 10 MG
     Route: 048
     Dates: start: 20160629
  10. LOCOID CRELO [Concomitant]
     Indication: ECZEMA
     Dosage: STYRKE: 0,1 %. DOSIS: UDVORTES 2 GANGE DAGLIG
     Route: 065
     Dates: start: 20160629
  11. PAMOL [Concomitant]
     Active Substance: ACETAMINOPHEN
     Indication: PAIN
     Dosage: STYRKE: 500 MG. DOSIS: 2 TABLETTER 3 GANGE DAGLIG EFTER BEHOV
     Route: 048
     Dates: start: 20160705

REACTIONS (5)
  - Polyuria [Recovering/Resolving]
  - Diabetic ketoacidosis [Recovering/Resolving]
  - Dehydration [Recovering/Resolving]
  - Malaise [Recovering/Resolving]
  - Hyperglycaemia [Recovering/Resolving]

NARRATIVE: CASE EVENT DATE: 201804
